FAERS Safety Report 4444681-5 (Version None)
Quarter: 2004Q3

REPORT INFORMATION
  Report Type: 
  Country: None (occurrence: None)
  Receive Date: 20040903
  Receipt Date: 20040823
  Transmission Date: 20050211
  Serious: Yes (Other)
  Sender: FDA-Public Use
  Company Number: K200401309

PATIENT
  Age: 36 Year
  Sex: Male

DRUGS (3)
  1. SEPTRA [Suspect]
  2. METHADONE (METHADONE) 275MG [Suspect]
     Dosage: 275 MG, QD, 160 MG, QD, UNK
  3. ANTIRETROVIRAL THERAPY [Concomitant]

REACTIONS (7)
  - DILATATION VENTRICULAR [None]
  - ELECTROCARDIOGRAM QT CORRECTED INTERVAL PROLONGED [None]
  - ELECTROCARDIOGRAM QT PROLONGED [None]
  - SINUS BRADYCARDIA [None]
  - SYNCOPE [None]
  - TORSADE DE POINTES [None]
  - VENTRICULAR HYPOKINESIA [None]
